FAERS Safety Report 16820937 (Version 1)
Quarter: 2019Q3

REPORT INFORMATION
  Report Type: Spontaneous
  Country: US (occurrence: US)
  Receive Date: 20190918
  Receipt Date: 20190918
  Transmission Date: 20191005
  Serious: No
  Sender: FDA-Public Use
  Company Number: US-TEVA-2019-US-1108048

PATIENT
  Sex: Male

DRUGS (3)
  1. QUETIAPINE FUMARATE TEVA [Suspect]
     Active Substance: QUETIAPINE FUMARATE
  2. VALIUM [Concomitant]
     Active Substance: DIAZEPAM
     Indication: NERVOUSNESS
  3. QUETIAPINE FUMARATE TEVA [Suspect]
     Active Substance: QUETIAPINE FUMARATE
     Indication: NERVOUSNESS
     Dosage: 1000 MILLIGRAM DAILY; QUETIAPINE FUMARATE: 200 MG 5 TIMES A DAY AS NEEDED
     Dates: start: 20190812

REACTIONS (3)
  - Drug ineffective [Unknown]
  - Product substitution issue [Unknown]
  - Product physical issue [Unknown]
